FAERS Safety Report 7944525-0 (Version None)
Quarter: 2011Q4

REPORT INFORMATION
  Report Type: 
  Country: None (occurrence: None)
  Receive Date: 20111122
  Receipt Date: 20110809
  Transmission Date: 20120403
  Serious: No
  Sender: FDA-Public Use
  Company Number: PHHY2011US64267

PATIENT
  Age: 36 Year
  Sex: Male
  Weight: 104.3 kg

DRUGS (1)
  1. GILENYA [Suspect]
     Indication: MULTIPLE SCLEROSIS
     Dosage: 0.5 MG, QD, ORAL
     Route: 048
     Dates: start: 20110628, end: 20110808

REACTIONS (2)
  - VITREOUS FLOATERS [None]
  - MIGRAINE [None]
